FAERS Safety Report 8864024 (Version 1)
Quarter: 2012Q4

REPORT INFORMATION
  Report Type: 
  Country: US (occurrence: US)
  Receive Date: 20121024
  Receipt Date: 20121024
  Transmission Date: 20130627
  Serious: Yes (Hospitalization)
  Sender: FDA-Public Use
  Company Number: US-AMGEN-USASP2011062399

PATIENT
  Age: 70 Year
  Sex: Female
  Weight: 107.3 kg

DRUGS (2)
  1. ENBREL [Suspect]
     Indication: RHEUMATOID ARTHRITIS
     Dosage: 50 mg, qwk
     Dates: start: 20081101, end: 20111019
  2. CORTICOSTEROIDS [Concomitant]

REACTIONS (1)
  - Oesophageal candidiasis [Not Recovered/Not Resolved]
